FAERS Safety Report 4361153-7 (Version None)
Quarter: 2004Q2

REPORT INFORMATION
  Report Type: 
  Country: None (occurrence: None)
  Receive Date: 20040511
  Receipt Date: 20030917
  Transmission Date: 20050107
  Serious: Yes (Hospitalization)
  Sender: FDA-Public Use
  Company Number: USA030947531

PATIENT
  Sex: Female

DRUGS (1)
  1. PROZAC WEEKLY [Suspect]
     Dosage: 90 MG
     Dates: start: 19910101

REACTIONS (4)
  - ARTHRITIS [None]
  - FALL [None]
  - HIP FRACTURE [None]
  - PAIN [None]
